FAERS Safety Report 19810602 (Version 2)
Quarter: 2021Q3

REPORT INFORMATION
  Report Type: Spontaneous
  Country: US (occurrence: US)
  Receive Date: 20210909
  Receipt Date: 20210909
  Transmission Date: 20211014
  Serious: Yes (Death)
  Sender: FDA-Public Use
  Company Number: US-PFIZER INC-202101132415

PATIENT
  Age: 25 Year
  Sex: Male

DRUGS (9)
  1. DIPHENHYDRAMINE HCL [Concomitant]
     Active Substance: DIPHENHYDRAMINE HYDROCHLORIDE
     Dosage: UNK
  2. CODEINE [Suspect]
     Active Substance: CODEINE
     Dosage: UNK
  3. HYDROMORPHONE HYDROCHLORIDE. [Suspect]
     Active Substance: HYDROMORPHONE HYDROCHLORIDE
     Dosage: UNK
  4. ARIPIPRAZOLE. [Concomitant]
     Active Substance: ARIPIPRAZOLE
     Dosage: UNK
  5. MORPHINE [Suspect]
     Active Substance: MORPHINE
     Dosage: UNK
  6. KRATOM [Suspect]
     Active Substance: HERBALS\MITRAGYNINE
     Dosage: UNK
  7. THEBAINE [Concomitant]
     Active Substance: THEBAINE
     Dosage: UNK
  8. LAUDANOSINE [Concomitant]
     Active Substance: ATRACURIUM
     Dosage: UNK
  9. BUPROPION. [Concomitant]
     Active Substance: BUPROPION
     Dosage: UNK

REACTIONS (2)
  - Toxicity to various agents [Fatal]
  - Pulmonary oedema [Fatal]
